FAERS Safety Report 9484874 (Version 1)
Quarter: 2013Q3

REPORT INFORMATION
  Report Type: Spontaneous
  Country: JP (occurrence: JP)
  Receive Date: 20130828
  Receipt Date: 20130828
  Transmission Date: 20140515
  Serious: Yes (Other)
  Sender: FDA-Public Use
  Company Number: JP-B.I. PHARMACEUTICALS,INC./RIDGEFIELD-2013-BI-26551NB

PATIENT
  Sex: 0

DRUGS (1)
  1. PRADAXA [Suspect]
     Dosage: 300 MG
     Route: 065

REACTIONS (1)
  - Road traffic accident [Unknown]
